FAERS Safety Report 4274919-9 (Version None)
Quarter: 2004Q1

REPORT INFORMATION
  Report Type: 
  Country: None (occurrence: None)
  Receive Date: 20040120
  Receipt Date: 20031215
  Transmission Date: 20041129
  Serious: Yes (Other)
  Sender: FDA-Public Use
  Company Number: WAES 0401GBR00126

PATIENT
  Age: 78 Year
  Sex: Female

DRUGS (2)
  1. INFLUENZA VIRUS VACCINE (UNSPECIFIED) [Concomitant]
  2. TIMOPTIC [Suspect]
     Route: 047
     Dates: start: 19810101, end: 20010101

REACTIONS (14)
  - CHEST PAIN [None]
  - DEPRESSED MOOD [None]
  - DRUG WITHDRAWAL SYNDROME [None]
  - DRY MOUTH [None]
  - DYSPEPSIA [None]
  - INCREASED VISCOSITY OF BRONCHIAL SECRETION [None]
  - INFLUENZA [None]
  - LOWER RESPIRATORY TRACT INFECTION [None]
  - MARKEDLY REDUCED DIETARY INTAKE [None]
  - NASOPHARYNGITIS [None]
  - RHINORRHOEA [None]
  - SALIVA ALTERED [None]
  - TOOTH EROSION [None]
  - WEIGHT DECREASED [None]
